FAERS Safety Report 6519948-7 (Version None)
Quarter: 2009Q4

REPORT INFORMATION
  Report Type: 
  Country: None (occurrence: None)
  Receive Date: 20091229
  Receipt Date: 20091221
  Transmission Date: 20100525
  Serious: Yes (Other)
  Sender: FDA-Public Use
  Company Number: US-ASTRAZENECA-2007UW24128

PATIENT
  Age: 59 Year
  Sex: Male
  Weight: 90.3 kg

DRUGS (16)
  1. SEROQUEL [Suspect]
     Indication: HALLUCINATION, AUDITORY
     Route: 048
     Dates: start: 19980822
  2. SEROQUEL [Suspect]
     Dosage: 300 MG TAKE ONE TABLET BY MOUTH AT BEDTIME
     Route: 048
     Dates: start: 20000317
  3. SEROQUEL [Suspect]
     Route: 048
     Dates: start: 20070212
  4. SIMVASTATIN [Concomitant]
     Indication: BLOOD CHOLESTEROL
     Dosage: 20-40 MG TABLET TAKE HALF TABLET AT BEDTIME
     Route: 048
     Dates: start: 20020408
  5. PAXIL [Concomitant]
     Indication: ANGER
     Dates: start: 20000317
  6. TEMAZEPAM [Concomitant]
     Indication: SLEEP DISORDER
     Route: 048
  7. GEMFIBROZIL [Concomitant]
     Indication: BLOOD CHOLESTEROL
     Dosage: 600 MG TAKE ONE TABLET BY MOUTH TWICE A DAY
     Route: 048
     Dates: start: 20021209
  8. METFORMIN [Concomitant]
     Indication: DIABETES MELLITUS
     Dosage: 850 MG TABLET TAKE ONE TABLET BY MOUTH TWICE A DAY
     Route: 048
     Dates: start: 20021209
  9. OMEPRAZOLE [Concomitant]
     Dates: start: 20070212
  10. ZOLOFT [Concomitant]
     Indication: DEPRESSION
     Dates: start: 19980804
  11. INSULIN [Concomitant]
     Indication: TYPE 1 DIABETES MELLITUS
     Dates: start: 20090301
  12. TRAMADOL HCL [Concomitant]
     Indication: PAIN
     Dosage: TWO TABLETS EVERY 6 HRS PRN
     Dates: start: 20090301
  13. TRAMADOL HCL [Concomitant]
     Dates: start: 20070212
  14. CELEBREX [Concomitant]
     Dates: start: 20070212
  15. HYDROCODONE BITARTRATE AND ACETAMINOPHEN [Concomitant]
     Dosage: 7.5-750
     Dates: start: 20090701
  16. LUNESTA [Concomitant]
     Indication: INSOMNIA
     Dates: start: 20050622

REACTIONS (3)
  - DIABETES MELLITUS INADEQUATE CONTROL [None]
  - DIABETIC NEUROPATHY [None]
  - WEIGHT INCREASED [None]
